FAERS Safety Report 8997385 (Version 1)
Quarter: 2013Q1

REPORT INFORMATION
  Report Type: Spontaneous
  Country: DK (occurrence: CH)
  Receive Date: 20130104
  Receipt Date: 20130104
  Transmission Date: 20140127
  Serious: Yes (Life-Threatening)
  Sender: FDA-Public Use
  Company Number: CH-FRI-1000041410

PATIENT
  Sex: Female

DRUGS (16)
  1. PARACETAMOL [Suspect]
     Indication: PAIN
     Dosage: 4000 MG
     Route: 048
     Dates: start: 20121205, end: 20121209
  2. ROCEPHIN [Suspect]
     Dosage: 1500 MG
     Dates: start: 20121205, end: 20121209
  3. FLAGYL [Suspect]
     Dosage: 2000 MG
     Dates: start: 20121205, end: 20121209
  4. XARELTO [Suspect]
     Dosage: 10 MG
     Dates: start: 20121207, end: 20121209
  5. AMLODIPINE [Suspect]
     Dosage: 5 MG
     Dates: end: 20121208
  6. ESOMEPRAZOLE [Suspect]
     Dosage: 40 MG
     Dates: start: 20121205, end: 20121209
  7. REMINYL [Suspect]
     Dosage: 16 MG
     Dates: end: 20121211
  8. ZOLPIDEM [Suspect]
     Dosage: 5 MG
  9. INEGY [Suspect]
     Dosage: 10 MG
     Dates: end: 20121208
  10. OMEPRAZOL [Concomitant]
     Dosage: 20 MG
  11. IBUPROFEN [Concomitant]
  12. CALCIMAGON D3 [Concomitant]
     Dosage: 500 MG
  13. PREDNISOLONE [Concomitant]
     Dosage: 10 MG
  14. CALCIPARIN [Concomitant]
     Dates: start: 20121205, end: 20121209
  15. ESCITALOPRAM [Suspect]
     Dosage: 10 MG
     Dates: end: 20121206
  16. ZALDIAR [Suspect]
     Indication: PAIN
     Dosage: 1300 MG
     Route: 048
     Dates: end: 20121204

REACTIONS (1)
  - Hepatocellular injury [Not Recovered/Not Resolved]
